FAERS Safety Report 5036168-6 (Version None)
Quarter: 2006Q2

REPORT INFORMATION
  Report Type: 
  Country: None (occurrence: None)
  Receive Date: 20060526
  Receipt Date: 20060223
  Transmission Date: 20061013
  Serious: No
  Sender: FDA-Public Use
  Company Number: 222541

PATIENT
  Age: 51 Year
  Sex: Male

DRUGS (1)
  1. RAPTIVA [Suspect]
     Indication: PSORIASIS
     Dosage: 2/WEEK
     Dates: start: 20050401

REACTIONS (2)
  - PSORIASIS [None]
  - WHITE BLOOD CELL COUNT INCREASED [None]
